FAERS Safety Report 18266737 (Version 1)
Quarter: 2020Q3

REPORT INFORMATION
  Report Type: Spontaneous
  Country: BR (occurrence: BR)
  Receive Date: 20200915
  Receipt Date: 20200915
  Transmission Date: 20201103
  Serious: Yes (Hospitalization, Other)
  Sender: FDA-Public Use
  Company Number: BR-UCBSA-2020026688

PATIENT
  Sex: Female

DRUGS (3)
  1. KEPPRA [Suspect]
     Active Substance: LEVETIRACETAM
     Indication: EPILEPSY
     Dosage: 250 MILLIGRAM, 4X/DAY (QID)
     Dates: start: 2020
  2. KEPPRA [Suspect]
     Active Substance: LEVETIRACETAM
     Indication: OFF LABEL USE
  3. KEPPRA [Suspect]
     Active Substance: LEVETIRACETAM
     Indication: LIMBIC ENCEPHALITIS

REACTIONS (3)
  - Off label use [Unknown]
  - Epilepsy [Unknown]
  - Limbic encephalitis [Unknown]

NARRATIVE: CASE EVENT DATE: 2020
